FAERS Safety Report 15954019 (Version 6)
Quarter: 2019Q4

REPORT INFORMATION
  Report Type: Report from Study
  Country: JP (occurrence: JP)
  Receive Date: 20190213
  Receipt Date: 20191004
  Transmission Date: 20200122
  Serious: Yes (Other)
  Sender: FDA-Public Use
  Company Number: JP-BRISTOL-MYERS SQUIBB COMPANY-BMS-2019-013873

PATIENT
  Age: 59 Year
  Sex: Female

DRUGS (35)
  1. LOXOPROFEN SODIUM [Concomitant]
     Active Substance: LOXOPROFEN SODIUM
     Indication: PRODUCT USED FOR UNKNOWN INDICATION
     Dosage: UNK
     Route: 065
  2. LANSOPRAZOLE. [Concomitant]
     Active Substance: LANSOPRAZOLE
     Indication: PRODUCT USED FOR UNKNOWN INDICATION
     Dosage: UNK
     Route: 048
  3. THEOPHYLLINE [Concomitant]
     Active Substance: THEOPHYLLINE ANHYDROUS
     Indication: PRODUCT USED FOR UNKNOWN INDICATION
     Dosage: UNK
     Route: 065
  4. BAKTAR [Concomitant]
     Active Substance: SULFAMETHOXAZOLE\TRIMETHOPRIM
     Indication: PRODUCT USED FOR UNKNOWN INDICATION
     Dosage: UNK
     Route: 065
  5. AMBROXOL HYDROCHLORIDE [Concomitant]
     Active Substance: AMBROXOL HYDROCHLORIDE
     Indication: PRODUCT USED FOR UNKNOWN INDICATION
     Dosage: 15 MILLIGRAM
     Route: 065
  6. SHOSAIKOTOKAKIKYOSEKKO [Concomitant]
     Indication: PRODUCT USED FOR UNKNOWN INDICATION
     Route: 065
  7. METHOTREXATE (METHOTREXATE SODIUM) [Concomitant]
     Active Substance: METHOTREXATE SODIUM
     Indication: PRODUCT USED FOR UNKNOWN INDICATION
     Dosage: UNK
     Route: 065
  8. METOCLOPRAMIDE. [Concomitant]
     Active Substance: METOCLOPRAMIDE
     Indication: PRODUCT USED FOR UNKNOWN INDICATION
     Dosage: UNK
     Route: 065
  9. FOLIAMIN [Concomitant]
     Active Substance: FOLIC ACID
     Indication: PRODUCT USED FOR UNKNOWN INDICATION
     Dosage: UNK
     Route: 065
  10. ETIZOLAM [Concomitant]
     Active Substance: ETIZOLAM
     Indication: PRODUCT USED FOR UNKNOWN INDICATION
     Dosage: UNK
     Route: 065
  11. ZOLPIDEM TARTATE [Concomitant]
     Active Substance: ZOLPIDEM TARTRATE
     Indication: PRODUCT USED FOR UNKNOWN INDICATION
     Dosage: UNK
     Route: 065
  12. TRYPTANOL                          /00002202/ [Concomitant]
     Active Substance: AMITRIPTYLINE
     Indication: PRODUCT USED FOR UNKNOWN INDICATION
     Route: 065
  13. DICLOFENAC SODIUM. [Concomitant]
     Active Substance: DICLOFENAC SODIUM
     Indication: PRODUCT USED FOR UNKNOWN INDICATION
     Route: 065
  14. SODIUM HYALURONATE [Concomitant]
     Active Substance: HYALURONATE SODIUM
     Indication: PRODUCT USED FOR UNKNOWN INDICATION
     Route: 014
  15. DELLEGRA [Concomitant]
     Active Substance: FEXOFENADINE HYDROCHLORIDE\PSEUDOEPHEDRINE HYDROCHLORIDE
     Indication: PRODUCT USED FOR UNKNOWN INDICATION
     Dosage: UNK
     Route: 065
  16. CHLORPHENESIN CARBAMATE [Concomitant]
     Active Substance: CHLORPHENESIN CARBAMATE
     Indication: PRODUCT USED FOR UNKNOWN INDICATION
     Dosage: UNK
     Route: 065
  17. EQUMET [Concomitant]
     Active Substance: METFORMIN HYDROCHLORIDE\VILDAGLIPTIN
     Indication: PRODUCT USED FOR UNKNOWN INDICATION
     Dosage: UNK
     Route: 065
  18. MIRTAZAPINE. [Concomitant]
     Active Substance: MIRTAZAPINE
     Indication: PRODUCT USED FOR UNKNOWN INDICATION
     Route: 065
  19. ABATACEPT [Suspect]
     Active Substance: ABATACEPT
     Indication: RHEUMATOID ARTHRITIS
     Dosage: 125 MILLIGRAM, QWK
     Route: 058
     Dates: start: 20171102
  20. LANTUS XR [Concomitant]
     Active Substance: INSULIN GLARGINE
     Indication: PRODUCT USED FOR UNKNOWN INDICATION
     Dosage: UNK
     Route: 065
  21. CANALIA COMBINATION                /09622601/ [Concomitant]
     Active Substance: CANAGLIFLOZIN\TENELIGLIPTIN
     Indication: PRODUCT USED FOR UNKNOWN INDICATION
     Dosage: UNK
     Route: 065
  22. TRAMAL [Concomitant]
     Active Substance: TRAMADOL
     Indication: PRODUCT USED FOR UNKNOWN INDICATION
     Dosage: UNK
     Route: 048
  23. METFORMIN HYDROCHLORIDE. [Concomitant]
     Active Substance: METFORMIN HYDROCHLORIDE
     Indication: PRODUCT USED FOR UNKNOWN INDICATION
     Dosage: UNK
     Route: 065
  24. CARERAM [Concomitant]
     Active Substance: IGURATIMOD
     Indication: PRODUCT USED FOR UNKNOWN INDICATION
     Route: 065
  25. GLIMEPIRIDE. [Concomitant]
     Active Substance: GLIMEPIRIDE
     Indication: PRODUCT USED FOR UNKNOWN INDICATION
     Route: 065
  26. MAKYOKANSEKITO [Concomitant]
     Active Substance: CALCIUM SULFATE\HERBALS
     Indication: PRODUCT USED FOR UNKNOWN INDICATION
     Route: 065
  27. CYMBALTA [Concomitant]
     Active Substance: DULOXETINE HYDROCHLORIDE
     Indication: PRODUCT USED FOR UNKNOWN INDICATION
     Dosage: UNK
     Route: 065
  28. ACETAMINOPHEN. [Concomitant]
     Active Substance: ACETAMINOPHEN
     Indication: PRODUCT USED FOR UNKNOWN INDICATION
     Dosage: UNK
     Route: 065
  29. BROTIZOLAM [Concomitant]
     Active Substance: BROTIZOLAM
     Indication: PRODUCT USED FOR UNKNOWN INDICATION
     Route: 048
  30. XYLOCAINE [Concomitant]
     Active Substance: LIDOCAINE HYDROCHLORIDE
     Indication: PRODUCT USED FOR UNKNOWN INDICATION
     Route: 065
  31. PATANOL [Concomitant]
     Active Substance: OLOPATADINE HYDROCHLORIDE
     Indication: PRODUCT USED FOR UNKNOWN INDICATION
     Dosage: UNK
     Route: 065
  32. REBAMIPIDE [Concomitant]
     Active Substance: REBAMIPIDE
     Indication: PRODUCT USED FOR UNKNOWN INDICATION
     Dosage: UNK
     Route: 065
  33. NEO VITACAIN                       /01127401/ [Concomitant]
     Indication: PRODUCT USED FOR UNKNOWN INDICATION
     Route: 065
  34. TRANEXAMIC ACID. [Concomitant]
     Active Substance: TRANEXAMIC ACID
     Indication: PRODUCT USED FOR UNKNOWN INDICATION
     Dosage: 250 MILLIGRAM
     Route: 065
  35. CARVEDILOL. [Concomitant]
     Active Substance: CARVEDILOL
     Indication: PRODUCT USED FOR UNKNOWN INDICATION
     Dosage: UNK
     Route: 065

REACTIONS (11)
  - Gastroenteritis [Recovered/Resolved]
  - Bronchitis [Recovered/Resolved]
  - Hypotension [Recovered/Resolved]
  - Pharyngitis [Recovered/Resolved]
  - Sinusitis [Recovered/Resolved]
  - Chronic kidney disease [Recovering/Resolving]
  - Hypertension [Not Recovered/Not Resolved]
  - Depression [Not Recovered/Not Resolved]
  - Cough [Not Recovered/Not Resolved]
  - Glossitis [Recovered/Resolved]
  - Fibromyalgia [Not Recovered/Not Resolved]

NARRATIVE: CASE EVENT DATE: 20171108
